FAERS Safety Report 4919831-4 (Version None)
Quarter: 2006Q1

REPORT INFORMATION
  Report Type: 
  Country: None (occurrence: None)
  Receive Date: 20060221
  Receipt Date: 20060221
  Transmission Date: 20060701
  Serious: Yes (Other)
  Sender: FDA-Public Use
  Company Number: None

PATIENT
  Sex: Female
  Weight: 83 kg

DRUGS (3)
  1. FLUOROURACIL [Suspect]
     Indication: COLON CANCER
     Dosage: 4776 MG
     Dates: end: 20060202
  2. LEUCOVORIN CALCIUM [Suspect]
     Dosage: 796 MG
     Dates: end: 20060131
  3. ELOXATIN [Suspect]
     Dosage: 169.15 MG
     Dates: end: 20060131

REACTIONS (5)
  - ABDOMINAL HERNIA [None]
  - DECREASED ACTIVITY [None]
  - IMPAIRED WORK ABILITY [None]
  - INCISIONAL HERNIA [None]
  - PAIN [None]
